FAERS Safety Report 13632007 (Version 2)
Quarter: 2018Q1

REPORT INFORMATION
  Report Type: Spontaneous
  Country: IT (occurrence: IT)
  Receive Date: 20170608
  Receipt Date: 20180214
  Transmission Date: 20180508
  Serious: Yes (Hospitalization)
  Sender: FDA-Public Use
  Company Number: IT-ALLERGAN-1723100US

PATIENT
  Age: 48 Year
  Sex: Male

DRUGS (3)
  1. BRIMONIDINE TARTRATE. [Concomitant]
     Active Substance: BRIMONIDINE TARTRATE
     Dosage: UNK
     Route: 065
  2. OZURDEX [Suspect]
     Active Substance: DEXAMETHASONE
     Indication: DIABETIC RETINAL OEDEMA
     Dosage: 0.7 MG, SINGLE
     Route: 031
     Dates: start: 20150801, end: 20150801
  3. TIMOLOL. [Concomitant]
     Active Substance: TIMOLOL
     Dosage: UNK
     Route: 047

REACTIONS (2)
  - Ocular hypertension [Recovered/Resolved]
  - Cataract [Recovered/Resolved]

NARRATIVE: CASE EVENT DATE: 20160301
